FAERS Safety Report 24288724 (Version 1)
Quarter: 2024Q3

REPORT INFORMATION
  Report Type: Report from Study
  Country: IT (occurrence: None)
  Receive Date: 20240906
  Receipt Date: 20240906
  Transmission Date: 20241017
  Serious: Yes (Hospitalization)
  Sender: ASTRAZENECA
  Company Number: 2024A199429

PATIENT
  Age: 73 Year
  Sex: Male
  Weight: 69 kg

DRUGS (8)
  1. DAPAGLIFLOZIN [Suspect]
     Active Substance: DAPAGLIFLOZIN
     Indication: Type 2 diabetes mellitus
     Dosage: 10MG/DAY
     Route: 048
     Dates: start: 20240525, end: 20240612
  2. ONPATTRO [Suspect]
     Active Substance: PATISIRAN SODIUM
     Indication: Acquired ATTR amyloidosis
     Dosage: 300MG/KG OGNI 3 SETTIMANE
     Route: 042
     Dates: start: 202110, end: 20240522
  3. ALLOPURINOL [Concomitant]
     Active Substance: ALLOPURINOL
     Indication: Hyperuricaemia
     Dosage: 150MG/DAY. HE CANNOT GIVE THE EXACT START DATE, IN THERAPY FOR YEARS
     Route: 048
  4. METFORMIN HYDROCHLORIDE [Concomitant]
     Active Substance: METFORMIN HYDROCHLORIDE
     Indication: Type 2 diabetes mellitus
     Dosage: 1000MG/DAY, THERAPY IN PROGRESS FOR YEARS
     Route: 048
  5. PREGABALIN [Concomitant]
     Active Substance: PREGABALIN
     Indication: Neuralgia
     Dosage: 75MG+100MG
     Route: 048
  6. AMLODIPINE BESYLATE\PERINDOPRIL ARGININE [Concomitant]
     Active Substance: AMLODIPINE BESYLATE\PERINDOPRIL ARGININE
     Indication: Hypertension
     Dosage: 5/5MG 1CP/DAY. HE CAN^T SAY HOW LONG AGO EXACTLY HE TAKES IT, A DRUG THAT HAS BEEN USED FOR YEARS
     Route: 048
  7. BISOPROLOL FUMARATE [Concomitant]
     Active Substance: BISOPROLOL FUMARATE
     Indication: Hypertension
     Dosage: 2.5MG/DAY. HE CANNOT GIVE THE EXACT START DATE, IN THERAPY FOR MANY YEARS.
     Route: 048
  8. ROSUVASTATIN AND EZETIMIBE SANDOZ [Concomitant]
     Indication: Dyslipidaemia
     Dosage: 5/10MG DAILY. HE CANNOT GIVE THE EXACT START DATE, IN THERAPY FOR MANY YEARS
     Route: 048

REACTIONS (5)
  - Balance disorder [Recovered/Resolved with Sequelae]
  - Asthenia [Recovered/Resolved with Sequelae]
  - Metabolic acidosis [Recovered/Resolved with Sequelae]
  - Hyperkalaemia [Recovered/Resolved with Sequelae]
  - Acute kidney injury [Recovered/Resolved with Sequelae]

NARRATIVE: CASE EVENT DATE: 20240610
